FAERS Safety Report 20163833 (Version 1)
Quarter: 2021Q4

REPORT INFORMATION
  Report Type: Spontaneous
  Country: US (occurrence: US)
  Receive Date: 20211209
  Receipt Date: 20211209
  Transmission Date: 20220303
  Serious: Yes (Other)
  Sender: FDA-Public Use
  Company Number: US-SA-SAC20211208000056

PATIENT
  Age: 68 Year
  Sex: Male

DRUGS (1)
  1. DUPIXENT [Suspect]
     Active Substance: DUPILUMAB
     Dosage: 300 MG, QOW
     Route: 058
     Dates: start: 202108

REACTIONS (3)
  - Type 2 diabetes mellitus [Unknown]
  - Blood glucose increased [Unknown]
  - Vision blurred [Unknown]

NARRATIVE: CASE EVENT DATE: 20211124
